FAERS Safety Report 4819411-5 (Version None)
Quarter: 2005Q4

REPORT INFORMATION
  Report Type: 
  Country: None (occurrence: None)
  Receive Date: 20051031
  Receipt Date: 20050726
  Transmission Date: 20060501
  Serious: No
  Sender: FDA-Public Use
  Company Number: 2005PV000631

PATIENT
  Age: 60 Year
  Sex: Female
  Weight: 65.7716 kg

DRUGS (7)
  1. SYMLIN [Suspect]
     Indication: DIABETES MELLITUS INSULIN-DEPENDENT
     Dosage: 15 MCG; TID; SC; 30 MCG; TID;SC; 60 MCG; TID; SC
     Route: 058
     Dates: start: 20050621, end: 20050701
  2. SYMLIN [Suspect]
     Indication: DIABETES MELLITUS INSULIN-DEPENDENT
     Dosage: 15 MCG; TID; SC; 30 MCG; TID;SC; 60 MCG; TID; SC
     Route: 058
     Dates: start: 20050701, end: 20050701
  3. SYMLIN [Suspect]
     Indication: DIABETES MELLITUS INSULIN-DEPENDENT
     Dosage: 15 MCG; TID; SC; 30 MCG; TID;SC; 60 MCG; TID; SC
     Route: 058
     Dates: start: 20050701
  4. HORMONE [Concomitant]
  5. MULTIVIT [Concomitant]
  6. FOLIC ACID [Concomitant]
  7. NOVOLOG [Concomitant]

REACTIONS (1)
  - DECREASED APPETITE [None]
